FAERS Safety Report 8509526-2 (Version None)
Quarter: 2012Q3

REPORT INFORMATION
  Report Type: 
  Country: None (occurrence: None)
  Receive Date: 20120713
  Receipt Date: 20120710
  Transmission Date: 20120928
  Serious: Yes (Other)
  Sender: FDA-Public Use
  Company Number: US-PFIZER INC-2012165984

PATIENT
  Sex: Male
  Weight: 71.202 kg

DRUGS (3)
  1. DILANTIN [Suspect]
     Indication: CONVULSION
     Dosage: 100 MG, 3X/DAY
     Route: 048
  2. DILANTIN [Suspect]
     Dosage: 100 MG, 4X/DAY
     Route: 048
  3. DILANTIN [Suspect]
     Dosage: 100 MG, UNK
     Route: 048

REACTIONS (8)
  - ANTICONVULSANT DRUG LEVEL INCREASED [None]
  - POLLAKIURIA [None]
  - COMPULSIVE LIP BITING [None]
  - MALAISE [None]
  - HYPOAESTHESIA [None]
  - PALPITATIONS [None]
  - FEELING ABNORMAL [None]
  - HEADACHE [None]
